FAERS Safety Report 9018834 (Version 1)
Quarter: 2013Q1

REPORT INFORMATION
  Report Type: Report from Study
  Country: NO (occurrence: NO)
  Receive Date: 20130118
  Receipt Date: 20130118
  Transmission Date: 20140127
  Serious: Yes (Hospitalization)
  Sender: FDA-Public Use
  Company Number: NO-BAXTER-2013BAX002103

PATIENT
  Sex: Female
  Weight: 55 kg

DRUGS (4)
  1. SENDOXAN [Suspect]
     Indication: BREAST CANCER
     Route: 042
     Dates: start: 20120106
  2. BEVACIZUMAB [Suspect]
     Indication: BREAST CANCER
     Route: 042
     Dates: start: 20120106
  3. FLUOROURACIL [Suspect]
     Indication: BREAST CANCER
     Route: 042
     Dates: start: 20120106
  4. EPIRUBICIN HYDROCHLORIDE [Suspect]
     Indication: BREAST CANCER
     Route: 042
     Dates: start: 20120106

REACTIONS (1)
  - Infection [Recovered/Resolved]
